FAERS Safety Report 15879880 (Version 1)
Quarter: 2019Q1

REPORT INFORMATION
  Report Type: Spontaneous
  Country: BE (occurrence: BE)
  Receive Date: 20190128
  Receipt Date: 20190128
  Transmission Date: 20190417
  Serious: Yes (Death, Life-Threatening, Hospitalization)
  Sender: FDA-Public Use
  Company Number: BE-IMPAX LABORATORIES, LLC-2019-IPXL-00251

PATIENT
  Age: 72 Year
  Sex: Female

DRUGS (1)
  1. DIVALPROEX SODIUM ER [Suspect]
     Active Substance: DIVALPROEX SODIUM
     Indication: EPILEPSY
     Dosage: UNK
     Route: 065

REACTIONS (6)
  - Coma [Fatal]
  - Epilepsy [Unknown]
  - Septic shock [Unknown]
  - Pneumonia [Fatal]
  - Meningitis streptococcal [Unknown]
  - Drug ineffective [Unknown]
